FAERS Safety Report 7766578-5 (Version None)
Quarter: 2011Q3

REPORT INFORMATION
  Report Type: 
  Country: None (occurrence: None)
  Receive Date: 20110922
  Receipt Date: 20110915
  Transmission Date: 20111222
  Serious: Yes (Hospitalization)
  Sender: FDA-Public Use
  Company Number: US-BRISTOL-MYERS SQUIBB COMPANY-15985955

PATIENT
  Age: 50 Year
  Sex: Female
  Weight: 58 kg

DRUGS (11)
  1. CARBOPLATIN [Suspect]
     Indication: HEAD AND NECK CANCER
     Dosage: 1DF=5AUC,LAST DOSE ON 27JUL2011
     Route: 042
     Dates: start: 20110629
  2. CELEXA [Concomitant]
     Dates: start: 20110812
  3. FENTANYL [Concomitant]
     Dates: start: 20110208
  4. ROXICET [Concomitant]
     Dates: start: 20110629
  5. RANITIDINE [Concomitant]
     Dates: start: 20110121
  6. FOLIC ACID [Concomitant]
     Dates: start: 20110621
  7. TEMAZEPAM [Concomitant]
     Dates: start: 20110114
  8. TRAMADOL HCL [Concomitant]
     Dates: start: 20110812
  9. VITAMIN B-12 [Concomitant]
     Dates: start: 20110622
  10. CETUXIMAB [Suspect]
     Indication: HEAD AND NECK CANCER
     Dosage: 250MG/M2 ON 10AUG2011
     Route: 042
     Dates: start: 20110629
  11. PEMETREXED DISODIUM [Suspect]
     Indication: HEAD AND NECK CANCER
     Dosage: LAST DOSE ON 27JUL2011
     Route: 042
     Dates: start: 20110629

REACTIONS (1)
  - MENTAL STATUS CHANGES [None]
